FAERS Safety Report 16378789 (Version 1)
Quarter: 2019Q2

REPORT INFORMATION
  Report Type: Spontaneous
  Country: JP (occurrence: JP)
  Receive Date: 20190531
  Receipt Date: 20190531
  Transmission Date: 20190711
  Serious: Yes (Life-Threatening, Hospitalization, Other)
  Sender: FDA-Public Use
  Company Number: JP-009507513-1903JPN001830J

PATIENT
  Age: 60 Year
  Sex: Female
  Weight: 77 kg

DRUGS (3)
  1. KEYTRUDA [Suspect]
     Active Substance: PEMBROLIZUMAB
     Indication: NON-SMALL CELL LUNG CANCER
     Dosage: 200 MILLIGRAM, Q3W
     Route: 041
     Dates: start: 20190116, end: 20190228
  2. PEMETREXED DISODIUM [Suspect]
     Active Substance: PEMETREXED DISODIUM
     Indication: NON-SMALL CELL LUNG CANCER
     Dosage: 880 MILLIGRAM, Q3W
     Route: 041
     Dates: start: 20190116, end: 20190228
  3. CARBOPLATIN. [Suspect]
     Active Substance: CARBOPLATIN
     Indication: NON-SMALL CELL LUNG CANCER
     Dosage: 650 MILLIGRAM, Q3W
     Route: 041
     Dates: start: 20190116, end: 20190228

REACTIONS (5)
  - Diarrhoea [Recovered/Resolved]
  - Febrile neutropenia [Recovered/Resolved]
  - Platelet count decreased [Unknown]
  - Lymphangiosis carcinomatosa [Unknown]
  - Interstitial lung disease [Not Recovered/Not Resolved]

NARRATIVE: CASE EVENT DATE: 20190305
